FAERS Safety Report 11168070 (Version 1)
Quarter: 2015Q2

REPORT INFORMATION
  Report Type: Spontaneous
  Country: US (occurrence: US)
  Receive Date: 20150605
  Receipt Date: 20150605
  Transmission Date: 20150821
  Serious: Yes (Other)
  Sender: FDA-Public Use
  Company Number: US-RB PHARMACEUTICALS LIMITED-RB-079876-2015

PATIENT
  Age: 28 Year
  Sex: Female

DRUGS (4)
  1. SUBUTEX [Suspect]
     Active Substance: BUPRENORPHINE HYDROCHLORIDE
     Dosage: 6 MG, DAILY AT DELIVERY
     Route: 060
     Dates: start: 201412
  2. SUBUTEX [Suspect]
     Active Substance: BUPRENORPHINE HYDROCHLORIDE
     Indication: DRUG ABUSE
     Dosage: 4 MG, DAILY THORUGH OUT HER PREGNANCY
     Route: 060
     Dates: start: 201310, end: 201412
  3. NICOTINE. [Concomitant]
     Active Substance: NICOTINE
     Indication: SMOKING CESSATION THERAPY
     Dosage: 10 MG/CATRIDGE; UNITS 4 MG DELIVERED; 4-12 CARTRIDGES, DAILY
     Route: 065
     Dates: start: 20140717
  4. PRENATAL VITAMINS                  /02014401/ [Concomitant]
     Active Substance: VITAMINS
     Indication: PREGNANCY
     Dosage: UNK, DAILY
     Route: 048
     Dates: start: 20140505

REACTIONS (4)
  - Foetal non-stress test abnormal [Recovered/Resolved]
  - Cervical dysplasia [Not Recovered/Not Resolved]
  - Polyhydramnios [Recovered/Resolved]
  - Maternal exposure during pregnancy [Recovered/Resolved]

NARRATIVE: CASE EVENT DATE: 201403
